FAERS Safety Report 9397320 (Version 1)
Quarter: 2013Q3

REPORT INFORMATION
  Report Type: Spontaneous
  Country: US (occurrence: US)
  Receive Date: 20130712
  Receipt Date: 20130712
  Transmission Date: 20140515
  Serious: Yes (Hospitalization, Other)
  Sender: FDA-Public Use
  Company Number: US-AMGEN-USASP2013048711

PATIENT
  Sex: 0

DRUGS (2)
  1. SENSIPAR [Suspect]
     Indication: HYPERPARATHYROIDISM SECONDARY
     Dosage: 60 MG, QD
  2. SENSIPAR [Suspect]
     Indication: RENAL FAILURE CHRONIC

REACTIONS (3)
  - Infection [Unknown]
  - Gastrostomy [Unknown]
  - Convulsion [Unknown]
